FAERS Safety Report 9698122 (Version 1)
Quarter: 2013Q4

REPORT INFORMATION
  Report Type: Spontaneous
  Country: US (occurrence: US)
  Receive Date: 20131120
  Receipt Date: 20131120
  Transmission Date: 20140711
  Serious: Yes (Hospitalization)
  Sender: FDA-Public Use
  Company Number: US-ROCHE-1305426

PATIENT
  Age: 78 Year
  Sex: Male
  Weight: 37 kg

DRUGS (2)
  1. XOLAIR [Suspect]
     Indication: ASTHMA
     Route: 058
     Dates: start: 20130731
  2. XOLAIR [Suspect]
     Route: 058
     Dates: start: 201310, end: 201310

REACTIONS (1)
  - Gastrointestinal haemorrhage [Recovering/Resolving]
